FAERS Safety Report 23700384 (Version 1)
Quarter: 2024Q2

REPORT INFORMATION
  Report Type: Spontaneous
  Country: SK (occurrence: SK)
  Receive Date: 20240403
  Receipt Date: 20240403
  Transmission Date: 20240716
  Serious: Yes (Other)
  Sender: FDA-Public Use
  Company Number: None

PATIENT
  Age: 58 Year
  Sex: Female

DRUGS (6)
  1. ANASTROZOLE [Suspect]
     Active Substance: ANASTROZOLE
     Indication: Breast cancer metastatic
     Dosage: UNK
     Route: 065
     Dates: start: 201010, end: 201209
  2. ZOLEDRONIC ACID [Suspect]
     Active Substance: ZOLEDRONIC ACID
     Indication: Product used for unknown indication
     Dosage: UNK
     Route: 065
     Dates: start: 201006, end: 201202
  3. PAMIDRONATE [Suspect]
     Active Substance: PAMIDRONATE DISODIUM
     Indication: Product used for unknown indication
     Dosage: UNK
     Route: 065
     Dates: start: 201202, end: 201205
  4. VINORELBINE [Concomitant]
     Active Substance: VINORELBINE TARTRATE
     Indication: Breast cancer metastatic
     Dosage: UNK
     Route: 065
     Dates: start: 201212, end: 201305
  5. LAPATINIB [Suspect]
     Active Substance: LAPATINIB
     Indication: Breast cancer metastatic
     Dosage: UNK
     Route: 065
     Dates: start: 201201, end: 201305
  6. CAPECITABINE [Suspect]
     Active Substance: CAPECITABINE
     Indication: Breast cancer metastatic
     Dosage: UNK
     Route: 065
     Dates: start: 201209, end: 201211

REACTIONS (7)
  - Liver disorder [Unknown]
  - Pain in jaw [Unknown]
  - Condition aggravated [Unknown]
  - Diarrhoea [Unknown]
  - Metastases to lung [Unknown]
  - Disease progression [Unknown]
  - Osteoradionecrosis [Unknown]

NARRATIVE: CASE EVENT DATE: 20120201
